FAERS Safety Report 25655464 (Version 1)
Quarter: 2025Q3

REPORT INFORMATION
  Report Type: Spontaneous
  Country: US (occurrence: US)
  Receive Date: 20250807
  Receipt Date: 20250807
  Transmission Date: 20251020
  Serious: No
  Sender: MYLAN
  Company Number: US-MYLANLABS-2025M1065434

PATIENT
  Sex: Female

DRUGS (8)
  1. LYRICA [Suspect]
     Active Substance: PREGABALIN
     Indication: Fibromyalgia
     Dosage: UNK, BID (150 (UNITS NOT REPORTED) TWICE A DAY)
  2. LYRICA [Suspect]
     Active Substance: PREGABALIN
     Dosage: UNK, TID (150 (UNITS NOT REPORTED) 3 TIMES A DAY)
  3. VITAMIN D [Concomitant]
     Active Substance: VITAMIN D NOS
  4. VITAMIN B [Concomitant]
     Active Substance: VITAMIN B
  5. REXULTI [Concomitant]
     Active Substance: BREXPIPRAZOLE
  6. VITAMIN B12 [Concomitant]
     Active Substance: CYANOCOBALAMIN
  7. VITAMIN C [Concomitant]
     Active Substance: ASCORBIC ACID
  8. KLONOPIN [Concomitant]
     Active Substance: CLONAZEPAM

REACTIONS (2)
  - Bladder disorder [Unknown]
  - Feeling abnormal [Unknown]
